FAERS Safety Report 19850030 (Version 1)
Quarter: 2021Q3

REPORT INFORMATION
  Report Type: Spontaneous
  Country: US (occurrence: US)
  Receive Date: 20210917
  Receipt Date: 20210917
  Transmission Date: 20211014
  Serious: No
  Sender: FDA-Public Use
  Company Number: US-NOVOPROD-843497

PATIENT
  Sex: Female

DRUGS (2)
  1. WEGOVY [Suspect]
     Active Substance: SEMAGLUTIDE
     Indication: WEIGHT DECREASED
     Dosage: 0.5 MG, QW
     Route: 058
  2. WEGOVY [Suspect]
     Active Substance: SEMAGLUTIDE
     Indication: DIABETES MELLITUS MANAGEMENT
     Dosage: TITRATED DOSE
     Route: 058

REACTIONS (2)
  - Blood glucose abnormal [Unknown]
  - Inappropriate schedule of product administration [Unknown]
